FAERS Safety Report 7619989-2 (Version None)
Quarter: 2011Q3

REPORT INFORMATION
  Report Type: 
  Country: None (occurrence: None)
  Receive Date: 20110719
  Receipt Date: 20110627
  Transmission Date: 20111222
  Serious: No
  Sender: FDA-Public Use
  Company Number: US-ROXANE LABORATORIES, INC.-2011-RO-00893RO

PATIENT
  Age: 28 Year
  Sex: Female

DRUGS (1)
  1. METHADONE HCL [Suspect]
     Indication: DRUG DEPENDENCE
     Dosage: 40 MG
     Route: 048
     Dates: start: 20090101

REACTIONS (1)
  - PRODUCT TASTE ABNORMAL [None]
